FAERS Safety Report 10020351 (Version 1)
Quarter: 2014Q1

REPORT INFORMATION
  Report Type: Spontaneous
  Country: US (occurrence: US)
  Receive Date: 20140319
  Receipt Date: 20140319
  Transmission Date: 20141002
  Serious: No
  Sender: FDA-Public Use
  Company Number: US-BIOGENIDEC-2014BI022270

PATIENT
  Sex: Female

DRUGS (6)
  1. TECFIDERA [Suspect]
     Indication: MULTIPLE SCLEROSIS
     Route: 048
     Dates: start: 20131221, end: 20131227
  2. TECFIDERA [Suspect]
     Indication: MULTIPLE SCLEROSIS
     Route: 048
     Dates: start: 20131228
  3. OMEGA 3 [Concomitant]
  4. VIT B12 [Concomitant]
  5. VIT D [Concomitant]
  6. ASPIRIN [Concomitant]

REACTIONS (2)
  - Adverse drug reaction [Recovered/Resolved]
  - Surgery [Unknown]
